FAERS Safety Report 20205684 (Version 1)
Quarter: 2021Q4

REPORT INFORMATION
  Report Type: Spontaneous
  Country: US (occurrence: US)
  Receive Date: 20211220
  Receipt Date: 20211220
  Transmission Date: 20220303
  Serious: No
  Sender: FDA-Public Use
  Company Number: US-CELGENE-USA-20211203761

PATIENT
  Sex: Male

DRUGS (2)
  1. ZEPOSIA [Suspect]
     Active Substance: OZANIMOD HYDROCHLORIDE
     Indication: Colitis ulcerative
     Dosage: ZEPOISA STARTER 7
     Route: 048
  2. ZEPOSIA [Suspect]
     Active Substance: OZANIMOD HYDROCHLORIDE
     Indication: Colitis ulcerative

REACTIONS (6)
  - Asthenia [Unknown]
  - Weight decreased [Unknown]
  - Erythema [Unknown]
  - Diarrhoea [Unknown]
  - Faeces discoloured [Unknown]
  - Blood pressure increased [Unknown]
